FAERS Safety Report 7594504-0 (Version None)
Quarter: 2011Q2

REPORT INFORMATION
  Report Type: 
  Country: None (occurrence: None)
  Receive Date: 20110628
  Receipt Date: 20110620
  Transmission Date: 20111010
  Serious: Yes (Hospitalization, Other)
  Sender: FDA-Public Use
  Company Number: DKLU1071430

PATIENT
  Age: 19 Year
  Sex: Female

DRUGS (4)
  1. SABRIL [Suspect]
     Indication: EPILEPSY
     Dosage: 1500 MG MILLIGRAM(S), QAM, ORAL ; 2000 MG MILLIGRAM(S), QPM, ORAL
     Route: 048
     Dates: start: 20101001
  2. SABRIL [Suspect]
     Indication: EPILEPSY
     Dosage: 1500 MG MILLIGRAM(S), QAM, ORAL ; 2000 MG MILLIGRAM(S), QPM, ORAL
     Route: 048
     Dates: start: 20101001
  3. VIMPAT [Concomitant]
  4. DIAMOX [Concomitant]

REACTIONS (3)
  - FALL [None]
  - GRAND MAL CONVULSION [None]
  - BRADYCARDIA [None]
